FAERS Safety Report 4684961-1 (Version None)
Quarter: 2005Q2

REPORT INFORMATION
  Report Type: 
  Country: None (occurrence: None)
  Receive Date: 20050603
  Receipt Date: 20050530
  Transmission Date: 20051028
  Serious: Yes (Hospitalization, Disabling)
  Sender: FDA-Public Use
  Company Number: NLWYE684923MAY05

PATIENT
  Age: 26 Year
  Sex: Male

DRUGS (2)
  1. EFFEXOR [Suspect]
     Indication: DEPRESSION
     Dosage: 0.075 G 1X PER 1 DAY ORAL
     Route: 048
     Dates: start: 20001018, end: 20050314
  2. LAMISIL [Concomitant]

REACTIONS (5)
  - ALANINE AMINOTRANSFERASE INCREASED [None]
  - ASPARTATE AMINOTRANSFERASE INCREASED [None]
  - BLOOD LACTATE DEHYDROGENASE INCREASED [None]
  - CONGESTIVE CARDIOMYOPATHY [None]
  - PROTEIN URINE PRESENT [None]
